FAERS Safety Report 6758983-0 (Version None)
Quarter: 2010Q2

REPORT INFORMATION
  Report Type: 
  Country: None (occurrence: None)
  Receive Date: 20100607
  Receipt Date: 20100527
  Transmission Date: 20101027
  Serious: Yes (Other)
  Sender: FDA-Public Use
  Company Number: NO-JNJFOC-20100510554

PATIENT
  Sex: Female

DRUGS (2)
  1. SIMPONI [Suspect]
     Indication: ANKYLOSING SPONDYLITIS
  2. SIMPONI [Suspect]
     Indication: PSORIATIC ARTHROPATHY

REACTIONS (1)
  - ABSCESS [None]
